FAERS Safety Report 5601895-6 (Version None)
Quarter: 2008Q1

REPORT INFORMATION
  Report Type: 
  Country: None (occurrence: None)
  Receive Date: 20080108
  Receipt Date: 20070604
  Transmission Date: 20080703
  Serious: Yes (Other)
  Sender: FDA-Public Use
  Company Number: DIPAC-07-0481

PATIENT
  Age: 44 Year
  Sex: Male
  Weight: 64.8644 kg

DRUGS (5)
  1. DIPRIVAN [Suspect]
     Indication: SEDATION
     Dosage: 250 MG (ONCE), INTRAVENOUS
     Route: 042
     Dates: start: 20070514, end: 20070514
  2. BENADRYL [Suspect]
     Indication: DRUG USE FOR UNKNOWN INDICATION
     Dosage: (25 MG (ONCE) , EVERY 4-6 HOURS  PRN)
  3. NARDIL [Concomitant]
  4. ALPRAZOLAM [Concomitant]
  5. PEPCID [Concomitant]

REACTIONS (1)
  - SEROTONIN SYNDROME [None]
